FAERS Safety Report 7538338-1 (Version None)
Quarter: 2011Q2

REPORT INFORMATION
  Report Type: 
  Country: None (occurrence: None)
  Receive Date: 20110609
  Receipt Date: 20110603
  Transmission Date: 20111010
  Serious: Yes (Hospitalization)
  Sender: FDA-Public Use
  Company Number: ES-PFIZER INC-2011112352

PATIENT
  Age: 31 Year
  Sex: Female

DRUGS (1)
  1. VFEND [Suspect]
     Indication: ASPERGILLOSIS
     Dosage: 400 MG, 1X/DAY
     Route: 042
     Dates: start: 20100922, end: 20101008

REACTIONS (1)
  - HEPATITIS TOXIC [None]
